FAERS Safety Report 5688120-5 (Version None)
Quarter: 2008Q1

REPORT INFORMATION
  Report Type: 
  Country: None (occurrence: None)
  Receive Date: 20080327
  Receipt Date: 20080312
  Transmission Date: 20080703
  Serious: Yes (Hospitalization)
  Sender: FDA-Public Use
  Company Number: ACO_00450_2008

PATIENT
  Age: 58 Year
  Sex: Male

DRUGS (2)
  1. ZANAFLEX [Suspect]
     Indication: ARTHRALGIA
     Dosage: (4 MG BID ORAL)
     Route: 048
     Dates: end: 20080309
  2. ZANAFLEX [Suspect]
     Indication: BACK PAIN
     Dosage: (4 MG BID ORAL)
     Route: 048
     Dates: end: 20080309

REACTIONS (3)
  - KNEE ARTHROPLASTY [None]
  - OFF LABEL USE [None]
  - TACHYCARDIA [None]
